FAERS Safety Report 6466559-8 (Version None)
Quarter: 2009Q4

REPORT INFORMATION
  Report Type: 
  Country: None (occurrence: None)
  Receive Date: 20091127
  Receipt Date: 20091119
  Transmission Date: 20100525
  Serious: Yes (Hospitalization)
  Sender: FDA-Public Use
  Company Number: 2009029204

PATIENT
  Age: 39 Year
  Sex: Female
  Weight: 69.8539 kg

DRUGS (8)
  1. ACTIQ [Suspect]
     Indication: BACK PAIN
     Dosage: 200 MCG, TID UP TO 600 MCG, BU; 3000 MCG, (600 MCG, 5 IN 1 D), BU
     Route: 002
     Dates: start: 20030101, end: 20060101
  2. ACTIQ [Suspect]
     Indication: NECK PAIN
     Dosage: 200 MCG, TID UP TO 600 MCG, BU; 3000 MCG, (600 MCG, 5 IN 1 D), BU
     Route: 002
     Dates: start: 20030101, end: 20060101
  3. ACTIQ [Suspect]
     Indication: BACK PAIN
     Dosage: 200 MCG, TID UP TO 600 MCG, BU; 3000 MCG, (600 MCG, 5 IN 1 D), BU
     Route: 002
     Dates: start: 20060101, end: 20090201
  4. ACTIQ [Suspect]
     Indication: NECK PAIN
     Dosage: 200 MCG, TID UP TO 600 MCG, BU; 3000 MCG, (600 MCG, 5 IN 1 D), BU
     Route: 002
     Dates: start: 20060101, end: 20090201
  5. LEVOXYL [Concomitant]
  6. CENESTIN [Concomitant]
  7. TOPAMAX [Concomitant]
  8. DILAUDID [Concomitant]

REACTIONS (3)
  - CHEST DISCOMFORT [None]
  - DRUG PRESCRIBING ERROR [None]
  - OESOPHAGEAL SPASM [None]
